FAERS Safety Report 15755736 (Version 1)
Quarter: 2018Q4

REPORT INFORMATION
  Report Type: Report from Study
  Country: None (occurrence: AR)
  Receive Date: 20181224
  Receipt Date: 20181224
  Transmission Date: 20190205
  Serious: Yes (Other)
  Sender: FDA-Public Use
  Company Number: AR-ABBVIE-18K-007-2601900-00

PATIENT
  Age: 45 Year
  Sex: Female

DRUGS (1)
  1. HUMIRA [Suspect]
     Active Substance: ADALIMUMAB
     Indication: PSORIASIS
     Route: 058
     Dates: start: 20171107

REACTIONS (7)
  - Calcium deficiency [Not Recovered/Not Resolved]
  - Dizziness [Unknown]
  - Hypotension [Recovering/Resolving]
  - Psoriasis [Not Recovered/Not Resolved]
  - Tooth loss [Unknown]
  - Epistaxis [Unknown]
  - Hypertension [Recovered/Resolved]

NARRATIVE: CASE EVENT DATE: 201812
